FAERS Safety Report 5715158-1 (Version None)
Quarter: 2008Q2

REPORT INFORMATION
  Report Type: 
  Country: None (occurrence: None)
  Receive Date: 20080423
  Receipt Date: 20080416
  Transmission Date: 20081010
  Serious: Yes (Hospitalization, Other)
  Sender: FDA-Public Use
  Company Number: US-PFIZER INC-2007029661

PATIENT
  Sex: Female
  Weight: 72.1 kg

DRUGS (1)
  1. BEXTRA [Suspect]
     Route: 048

REACTIONS (4)
  - AMNESIA [None]
  - ANXIETY [None]
  - MUSCLE ATROPHY [None]
  - MYOCARDIAL INFARCTION [None]
